FAERS Safety Report 5243285-4 (Version None)
Quarter: 2007Q1

REPORT INFORMATION
  Report Type: 
  Country: None (occurrence: None)
  Receive Date: 20070215
  Receipt Date: 20070202
  Transmission Date: 20070707
  Serious: Yes (Other)
  Sender: FDA-Public Use
  Company Number: S07-POL-00607-01

PATIENT
  Age: 75 Year
  Sex: Female

DRUGS (1)
  1. MONUROL [Suspect]
     Indication: URINARY TRACT INFECTION
     Dosage: 3 G ONCE PO
     Route: 048
     Dates: start: 20070114, end: 20070114

REACTIONS (2)
  - CLOSTRIDIUM DIFFICILE COLITIS [None]
  - PSEUDOMEMBRANOUS COLITIS [None]
